FAERS Safety Report 11875516 (Version 2)
Quarter: 2016Q1

REPORT INFORMATION
  Report Type: Spontaneous
  Country: SE (occurrence: SE)
  Receive Date: 20151229
  Receipt Date: 20160202
  Transmission Date: 20160526
  Serious: Yes (Other)
  Sender: FDA-Public Use
  Company Number: CHPA2015SE015086

PATIENT
  Age: 54 Year
  Sex: Female

DRUGS (2)
  1. ZYRLEX [Concomitant]
     Indication: HYPERSENSITIVITY
     Dosage: UNK
     Route: 065
     Dates: start: 20151101, end: 20151103
  2. TAVEGYL [Suspect]
     Active Substance: CLEMASTINE FUMARATE
     Indication: HYPERSENSITIVITY
     Dosage: 1 MG, 1 TO 2 TIMES DAILY
     Route: 065
     Dates: start: 20040201, end: 20151101

REACTIONS (4)
  - Drug dependence [Recovered/Resolved]
  - Anxiety [Recovered/Resolved]
  - Restlessness [Recovered/Resolved]
  - Headache [Recovered/Resolved]

NARRATIVE: CASE EVENT DATE: 20151101
